FAERS Safety Report 9100475 (Version 3)
Quarter: 2013Q2

REPORT INFORMATION
  Report Type: Spontaneous
  Country: US (occurrence: US)
  Receive Date: 20130215
  Receipt Date: 20130402
  Transmission Date: 20140414
  Serious: Yes (Congenital Anomaly, Other)
  Sender: FDA-Public Use
  Company Number: US-PFIZER INC-2013057907

PATIENT
  Sex: Female

DRUGS (4)
  1. ZOLOFT [Suspect]
     Dosage: UNK
     Route: 064
     Dates: start: 1997, end: 2013
  2. PRENATAL VITAMINS [Concomitant]
     Dosage: UNK
     Route: 064
  3. PROPOXYPHENE [Concomitant]
     Dosage: UNK
     Route: 064
  4. BRETHINE [Concomitant]
     Dosage: UNK
     Route: 064

REACTIONS (4)
  - Maternal exposure during pregnancy [Not Recovered/Not Resolved]
  - Heart disease congenital [Unknown]
  - Supraventricular tachycardia [Not Recovered/Not Resolved]
  - Conduct disorder [Unknown]
